FAERS Safety Report 21770562 (Version 1)
Quarter: 2022Q4

REPORT INFORMATION
  Report Type: Spontaneous
  Country: US (occurrence: US)
  Receive Date: 20221223
  Receipt Date: 20221223
  Transmission Date: 20230113
  Serious: No
  Sender: FDA-Public Use
  Company Number: US-TEVA-2022-US-2837804

PATIENT
  Sex: Female

DRUGS (3)
  1. ALBUTEROL SULFATE [Suspect]
     Active Substance: ALBUTEROL SULFATE
     Indication: Asthma
     Dosage: 2 PUFFS IN THE MORNING AND AS NEEDED
     Route: 065
  2. ALBUTEROL SULFATE [Suspect]
     Active Substance: ALBUTEROL SULFATE
     Dosage: NEBULIZER
     Route: 055
  3. FLUTICASONE PROPIONATE,SALMETEROL [Concomitant]
     Indication: Product used for unknown indication

REACTIONS (3)
  - Drug effect less than expected [Unknown]
  - Intentional overdose [Unknown]
  - Product use issue [Unknown]
